FAERS Safety Report 23104424 (Version 2)
Quarter: 2023Q4

REPORT INFORMATION
  Report Type: Spontaneous
  Country: JP (occurrence: JP)
  Receive Date: 20231025
  Receipt Date: 20231220
  Transmission Date: 20240109
  Serious: Yes (Hospitalization, Other)
  Sender: FDA-Public Use
  Company Number: JP-ASTRAZENECA-230076777_070810_P_1

PATIENT
  Age: 1 Month
  Sex: Female

DRUGS (2)
  1. SYNAGIS [Suspect]
     Active Substance: PALIVIZUMAB
     Indication: Antiviral prophylaxis
     Dosage: IN THE RIGHT THIGH0.35ML UNKNOWN
     Route: 030
     Dates: start: 20230810, end: 20230810
  2. SYNAGIS [Suspect]
     Active Substance: PALIVIZUMAB
     Dosage: ONCE 4 WEEKS, IN THE LEFT THIGH
     Route: 030
     Dates: start: 20230906

REACTIONS (1)
  - Respiratory syncytial virus bronchiolitis [Recovered/Resolved]

NARRATIVE: CASE EVENT DATE: 20230907
